FAERS Safety Report 15547414 (Version 1)
Quarter: 2018Q4

REPORT INFORMATION
  Report Type: Report from Study
  Country: US (occurrence: US)
  Receive Date: 20181024
  Receipt Date: 20181024
  Transmission Date: 20190205
  Serious: Yes (Hospitalization)
  Sender: FDA-Public Use
  Company Number: US-ACTELION-A-NJ2018-179797

PATIENT
  Age: 34 Year
  Sex: Female

DRUGS (1)
  1. OPSUMIT [Suspect]
     Active Substance: MACITENTAN
     Indication: PULMONARY HYPERTENSION
     Dosage: UNK
     Route: 048
     Dates: start: 20180206

REACTIONS (11)
  - Weight increased [Not Recovered/Not Resolved]
  - Oedema peripheral [Not Recovered/Not Resolved]
  - Abdominal pain upper [Not Recovered/Not Resolved]
  - Gallbladder obstruction [Unknown]
  - Right ventricular failure [Not Recovered/Not Resolved]
  - Pulmonary hypertension [Unknown]
  - Cholelithiasis [Unknown]
  - Cholecystitis [Unknown]
  - Biliary colic [Recovered/Resolved with Sequelae]
  - Electrocardiogram ST-T segment abnormal [Recovering/Resolving]
  - Brain natriuretic peptide abnormal [Recovering/Resolving]

NARRATIVE: CASE EVENT DATE: 201803
